FAERS Safety Report 18898220 (Version 1)
Quarter: 2021Q1

REPORT INFORMATION
  Report Type: Spontaneous
  Country: US (occurrence: US)
  Receive Date: 20210213
  Receipt Date: 20210213
  Transmission Date: 20210420
  Serious: No
  Sender: FDA-Public Use
  Company Number: None

PATIENT
  Age: 24 Year
  Sex: Female
  Weight: 65.25 kg

DRUGS (4)
  1. OMEPRAZOLE. [Concomitant]
     Active Substance: OMEPRAZOLE
  2. IBUPROFEN PRN [Concomitant]
  3. NEXPLANON [Concomitant]
     Active Substance: ETONOGESTREL
  4. NEXPLANON [Suspect]
     Active Substance: ETONOGESTREL
     Dosage: ?          QUANTITY:1 IMPLANT;?
     Route: 058

REACTIONS (4)
  - Erythema [None]
  - Implant site pruritus [None]
  - Pruritus [None]
  - Mass [None]

NARRATIVE: CASE EVENT DATE: 20201026
